FAERS Safety Report 14898266 (Version 2)
Quarter: 2018Q2

REPORT INFORMATION
  Report Type: Spontaneous
  Country: US (occurrence: US)
  Receive Date: 20180515
  Receipt Date: 20180517
  Transmission Date: 20180711
  Serious: No
  Sender: FDA-Public Use
  Company Number: US-SA-2018SA015015

PATIENT
  Age: 64 Year
  Sex: Male
  Weight: 84.36 kg

DRUGS (2)
  1. SOLOSTAR [Suspect]
     Active Substance: DEVICE
  2. TOUJEO [Suspect]
     Active Substance: INSULIN GLARGINE
     Dosage: DOSE:40 UNIT(S)
     Route: 051
     Dates: start: 201712, end: 201801

REACTIONS (5)
  - Pruritus generalised [Recovered/Resolved]
  - Product use issue [Unknown]
  - Hypoaesthesia [Recovered/Resolved]
  - Blood glucose increased [Recovered/Resolved]
  - Back pain [Recovered/Resolved]

NARRATIVE: CASE EVENT DATE: 201712
